FAERS Safety Report 7296352-8 (Version None)
Quarter: 2011Q1

REPORT INFORMATION
  Report Type: 
  Country: None (occurrence: None)
  Receive Date: 20110211
  Receipt Date: 20110211
  Transmission Date: 20110831
  Serious: Yes (Other)
  Sender: FDA-Public Use
  Company Number: None

PATIENT
  Sex: Male
  Weight: 95.2554 kg

DRUGS (1)
  1. VENLAFAXINE HCL [Suspect]
     Indication: MAJOR DEPRESSION
     Dosage: 1 BID PO
     Route: 048
     Dates: start: 20110126, end: 20110206

REACTIONS (11)
  - PRODUCT SUBSTITUTION ISSUE [None]
  - DEPRESSION [None]
  - FATIGUE [None]
  - FEELING ABNORMAL [None]
  - DRUG DOSE OMISSION [None]
  - ACNE [None]
  - MOOD ALTERED [None]
  - IRRITABILITY [None]
  - PARAESTHESIA [None]
  - RASH PRURITIC [None]
  - DISEASE RECURRENCE [None]
